FAERS Safety Report 11601905 (Version 1)
Quarter: 2015Q4

REPORT INFORMATION
  Report Type: Spontaneous
  Country: US (occurrence: US)
  Receive Date: 20151006
  Receipt Date: 20151006
  Transmission Date: 20160304
  Serious: No
  Sender: FDA-Public Use
  Company Number: US-AMGEN-USASP2015056618

PATIENT
  Sex: Female

DRUGS (3)
  1. MULTIVITAMIN                       /00097801/ [Concomitant]
     Active Substance: VITAMINS
     Dosage: 200MG OF CALCIUM
  2. PROLIA [Suspect]
     Active Substance: DENOSUMAB
     Indication: PRODUCT USED FOR UNKNOWN INDICATION
     Dosage: UNK
     Route: 065
  3. CALCIUM CHEW [Concomitant]
     Dosage: 500 MG, BID

REACTIONS (2)
  - Fluid retention [Recovered/Resolved]
  - Muscle spasms [Recovered/Resolved]
